FAERS Safety Report 17994255 (Version 2)
Quarter: 2020Q3

REPORT INFORMATION
  Report Type: Spontaneous
  Country: US (occurrence: US)
  Receive Date: 20200708
  Receipt Date: 20200904
  Transmission Date: 20201103
  Serious: Yes (Death, Other)
  Sender: FDA-Public Use
  Company Number: US-PFIZER INC-2020260225

PATIENT
  Age: 47 Year
  Sex: Male

DRUGS (2)
  1. INLYTA [Suspect]
     Active Substance: AXITINIB
     Dosage: 1 MG
     Dates: start: 20200201
  2. INLYTA [Suspect]
     Active Substance: AXITINIB
     Dosage: 5 MG
     Dates: start: 20200121, end: 20200201

REACTIONS (4)
  - Death [Fatal]
  - Oropharyngeal pain [Unknown]
  - Eating disorder [Unknown]
  - Oral pain [Unknown]

NARRATIVE: CASE EVENT DATE: 2020
